FAERS Safety Report 10428337 (Version 5)
Quarter: 2015Q4

REPORT INFORMATION
  Report Type: Report from Study
  Country: US (occurrence: US)
  Receive Date: 20140903
  Receipt Date: 20151103
  Transmission Date: 20160304
  Serious: Yes (Hospitalization)
  Sender: FDA-Public Use
  Company Number: US-SA-2014SA014693

PATIENT
  Age: 53 Year
  Sex: Female

DRUGS (1)
  1. AUBAGIO [Suspect]
     Active Substance: TERIFLUNOMIDE
     Indication: MULTIPLE SCLEROSIS
     Route: 048
     Dates: start: 20140128

REACTIONS (8)
  - Abdominal distension [Unknown]
  - Fatigue [Recovering/Resolving]
  - Constipation [Unknown]
  - Stress [Recovering/Resolving]
  - Insomnia [Unknown]
  - Abdominal discomfort [Recovered/Resolved]
  - Transient ischaemic attack [Recovering/Resolving]
  - Decreased appetite [Recovered/Resolved]

NARRATIVE: CASE EVENT DATE: 20140128
